FAERS Safety Report 4632411-3 (Version None)
Quarter: 2005Q2

REPORT INFORMATION
  Report Type: 
  Country: None (occurrence: None)
  Receive Date: 20050411
  Receipt Date: 20050331
  Transmission Date: 20051028
  Serious: Yes (Hospitalization)
  Sender: FDA-Public Use
  Company Number: GB-JNJFOC-20050400853

PATIENT
  Age: 58 Year
  Sex: Male

DRUGS (5)
  1. IBUPROFEN [Suspect]
     Route: 049
  2. ARCOXIA [Suspect]
     Route: 049
  3. SERTRALINE HCL [Concomitant]
     Route: 049
  4. ATENOLOL [Concomitant]
     Route: 049
  5. BENDROFLUAZIDE [Concomitant]
     Route: 049

REACTIONS (3)
  - HAEMATEMESIS [None]
  - MELAENA [None]
  - VARICES OESOPHAGEAL [None]
